FAERS Safety Report 14155328 (Version 1)
Quarter: 2017Q4

REPORT INFORMATION
  Report Type: Not Available
  Country: None (occurrence: US)
  Receive Date: 20171103
  Receipt Date: 20171103
  Transmission Date: 20180321
  Serious: No
  Sender: FDA-Public Use
  Company Number: US-AKORN-71565

PATIENT
  Sex: Female

DRUGS (1)
  1. LACTULOSE SOLUTION, USP [Suspect]
     Active Substance: LACTULOSE

REACTIONS (2)
  - Abdominal pain [Recovered/Resolved]
  - Nausea [Recovered/Resolved]
